FAERS Safety Report 7077766-8 (Version None)
Quarter: 2010Q4

REPORT INFORMATION
  Report Type: 
  Country: None (occurrence: None)
  Receive Date: 20101101
  Receipt Date: 20101018
  Transmission Date: 20110411
  Serious: Yes (Hospitalization)
  Sender: FDA-Public Use
  Company Number: PHHY2010US70012

PATIENT
  Sex: Female

DRUGS (7)
  1. EXJADE [Suspect]
     Indication: HAEMOSIDEROSIS
     Dosage: 2000 MG
     Dates: start: 20100708
  2. PRILOSEC [Concomitant]
     Dosage: 200 MG, QD
  3. FOLIC ACID [Concomitant]
     Dosage: 2 MG, QD
     Dates: start: 20090101
  4. CELEXA [Concomitant]
     Dosage: UNK
     Dates: start: 20100101
  5. CONCERTA [Concomitant]
     Dosage: 36 MG, BID
  6. LORTAB [Concomitant]
  7. ELAVIL [Concomitant]

REACTIONS (7)
  - ASTHMA [None]
  - DYSKINESIA [None]
  - HYPOAESTHESIA [None]
  - NEUROPATHY PERIPHERAL [None]
  - SICKLE CELL ANAEMIA WITH CRISIS [None]
  - TREMOR [None]
  - WHITE BLOOD CELL COUNT INCREASED [None]
